FAERS Safety Report 16651605 (Version 1)
Quarter: 2019Q3

REPORT INFORMATION
  Report Type: Report from Study
  Country: CA (occurrence: CA)
  Receive Date: 20190731
  Receipt Date: 20190731
  Transmission Date: 20191004
  Serious: Yes (Other)
  Sender: FDA-Public Use
  Company Number: CA-JNJFOC-20190734205

PATIENT
  Age: 81 Year
  Sex: Male
  Weight: 81.2 kg

DRUGS (3)
  1. ASPRIN [Concomitant]
     Active Substance: ASPIRIN
  2. REMICADE [Suspect]
     Active Substance: INFLIXIMAB
     Indication: PSORIASIS
     Route: 042
  3. CANDESARTAN. [Concomitant]
     Active Substance: CANDESARTAN

REACTIONS (3)
  - Injury [Recovering/Resolving]
  - Skin laceration [Recovering/Resolving]
  - Basal cell carcinoma [Unknown]

NARRATIVE: CASE EVENT DATE: 2019
